FAERS Safety Report 19948407 (Version 1)
Quarter: 2021Q4

REPORT INFORMATION
  Report Type: Other
  Country: GB (occurrence: GB)
  Receive Date: 20211013
  Receipt Date: 20211013
  Transmission Date: 20220303
  Serious: Yes (Other)
  Sender: FDA-Public Use
  Company Number: GB-MACLEODS PHARMA UK LTD-MAC2021032929

PATIENT

DRUGS (7)
  1. TAMSULOSIN [Suspect]
     Active Substance: TAMSULOSIN
     Indication: Ill-defined disorder
     Dosage: UNK
     Route: 065
     Dates: start: 20170204
  2. BISOPROLOL [Concomitant]
     Active Substance: BISOPROLOL
     Indication: Ill-defined disorder
     Dosage: 1 DOSAGE FORM, QD; TAKE ONE TABLET DAILY AT 10 PM
     Route: 065
     Dates: start: 20210209
  3. EDOXABAN TOSYLATE [Concomitant]
     Active Substance: EDOXABAN TOSYLATE
     Indication: Ill-defined disorder
     Dosage: 1 DOSAGE FORM, QD; TAKE ONE TABLET ONCE DAILY
     Route: 065
     Dates: start: 20210209
  4. NITROGLYCERIN [Concomitant]
     Active Substance: NITROGLYCERIN
     Indication: Ill-defined disorder
     Dosage: UNK UNK, PRN, ONE PUFF AS NEEDED
     Route: 065
     Dates: start: 20210209
  5. ISOSORBIDE MONONITRATE [Concomitant]
     Active Substance: ISOSORBIDE MONONITRATE
     Indication: Ill-defined disorder
     Dosage: 1 DOSAGE FORM, QD; TAKE ONE TABLET DAILY AT 8 AM
     Route: 065
     Dates: start: 20210209
  6. RAMIPRIL [Concomitant]
     Active Substance: RAMIPRIL
     Indication: Ill-defined disorder
     Dosage: 1 DOSAGE FORM, QD, TAKE ONE DAILY
     Route: 065
     Dates: start: 20210209
  7. ROSUVASTATIN [Concomitant]
     Active Substance: ROSUVASTATIN
     Indication: Ill-defined disorder
     Dosage: 1 DOSAGE FORM, QOD; TAKE ONE TABLET ON ALTERNATE DAYS
     Route: 065
     Dates: start: 20210209

REACTIONS (2)
  - Rash macular [Recovered/Resolved]
  - Dyspnoea [Unknown]

NARRATIVE: CASE EVENT DATE: 20170205
